FAERS Safety Report 20052856 (Version 1)
Quarter: 2021Q4

REPORT INFORMATION
  Report Type: Spontaneous
  Country: GB (occurrence: GB)
  Receive Date: 20211110
  Receipt Date: 20211110
  Transmission Date: 20220303
  Serious: Yes (Other)
  Sender: FDA-Public Use
  Company Number: GB-AstraZeneca-2021A797456

PATIENT
  Age: 76 Year
  Sex: Female
  Weight: 98 kg

DRUGS (5)
  1. OMEPRAZOLE [Suspect]
     Active Substance: OMEPRAZOLE
     Indication: Product used for unknown indication
     Dosage: 20 MG, QD, (20 MG, DAILY, TO USE WHILST USING)
     Route: 048
     Dates: start: 20190709
  2. VENTOLIN [Suspect]
     Active Substance: ALBUTEROL SULFATE
     Indication: Product used for unknown indication
     Dosage: UNK, (AS DIRECTED)
     Route: 065
     Dates: start: 20091008
  3. ATORVASTATIN [Concomitant]
     Active Substance: ATORVASTATIN
     Indication: Product used for unknown indication
     Dosage: 1 DF, QD, (1 DF DAILY)
     Route: 065
     Dates: start: 20211018
  4. COMBISAL [Concomitant]
     Indication: Product used for unknown indication
     Dosage: 2 DF, BID, (2 DF, LABA/ICS INHALE SLOWLY AND STEADILY TWICE)
     Route: 055
     Dates: start: 20210706
  5. LEVOTHYROXINE [Concomitant]
     Active Substance: LEVOTHYROXINE
     Indication: Product used for unknown indication
     Dosage: 150 ?G, QD, (150 UG, DAILY)
     Route: 065
     Dates: start: 20201213

REACTIONS (1)
  - Epistaxis [Recovered/Resolved]

NARRATIVE: CASE EVENT DATE: 20211022
